FAERS Safety Report 14577200 (Version 1)
Quarter: 2018Q1

REPORT INFORMATION
  Report Type: Spontaneous
  Country: JP (occurrence: JP)
  Receive Date: 20180227
  Receipt Date: 20180227
  Transmission Date: 20180509
  Serious: Yes (Hospitalization, Other)
  Sender: FDA-Public Use
  Company Number: JP-ASTELLAS-2018US007238

PATIENT
  Age: 9 Decade
  Sex: Female

DRUGS (2)
  1. TARCEVA [Suspect]
     Active Substance: ERLOTINIB HYDROCHLORIDE
     Indication: PANCREATIC CARCINOMA
     Dosage: UNK UNK, UNKNOWN FREQ.
     Route: 048
  2. GEMCITABINE HYDROCHLORIDE. [Concomitant]
     Active Substance: GEMCITABINE HYDROCHLORIDE
     Indication: PANCREATIC CARCINOMA
     Dosage: UNK UNK, UNKNOWN FREQ. (DOSAGE IS UNCERTAIN)
     Route: 041

REACTIONS (3)
  - Depressed level of consciousness [Unknown]
  - Cerebral infarction [Unknown]
  - Coma [Unknown]

NARRATIVE: CASE EVENT DATE: 2018
